FAERS Safety Report 4392033-9 (Version None)
Quarter: 2004Q3

REPORT INFORMATION
  Report Type: 
  Country: None (occurrence: None)
  Receive Date: 20040708
  Receipt Date: 20040622
  Transmission Date: 20050211
  Serious: Yes (Hospitalization)
  Sender: FDA-Public Use
  Company Number: PHNR2004AU01152

PATIENT
  Age: 50 Year
  Sex: Female

DRUGS (5)
  1. GLEEVEC [Suspect]
     Indication: CHRONIC MYELOID LEUKAEMIA
     Dosage: 400 MG, QD
     Dates: start: 20030101, end: 20040601
  2. GLEEVEC [Suspect]
     Dosage: 300 MG, QD
     Dates: start: 20040601
  3. SLOW-K [Concomitant]
  4. ENDEP [Concomitant]
     Indication: DEPRESSION
  5. KAPANOL [Concomitant]

REACTIONS (7)
  - BLOOD CREATINE PHOSPHOKINASE INCREASED [None]
  - FALL [None]
  - HYPERTHERMIA [None]
  - JOINT INJURY [None]
  - ORTHOSTATIC HYPOTENSION [None]
  - RHABDOMYOLYSIS [None]
  - SKIN ULCER [None]
